FAERS Safety Report 20887268 (Version 1)
Quarter: 2022Q2

REPORT INFORMATION
  Report Type: Spontaneous
  Country: CO (occurrence: CO)
  Receive Date: 20220528
  Receipt Date: 20220528
  Transmission Date: 20220721
  Serious: Yes (Other)
  Sender: FDA-Public Use
  Company Number: CO-AMGEN-COLSP2022050283

PATIENT
  Age: 45 Year
  Sex: Male
  Weight: 65 kg

DRUGS (6)
  1. MVASI [Suspect]
     Active Substance: BEVACIZUMAB-AWWB
     Indication: Glioblastoma
     Dosage: 650 MILLIGRAM, QD
     Route: 042
     Dates: start: 20201205
  2. DEXAMETHASONE PHOSPHATE [Suspect]
     Active Substance: DEXAMETHASONE PHOSPHATE
     Indication: Glioblastoma
     Dosage: 8 MILLIGRAM, QD
     Route: 042
     Dates: start: 20201205
  3. IRINOTECAN [Suspect]
     Active Substance: IRINOTECAN
     Indication: Glioblastoma
     Dosage: 228.15 MILLIGRAM, QD
     Route: 042
     Dates: start: 20201205
  4. ONDANSETRON [Suspect]
     Active Substance: ONDANSETRON
     Indication: Glioblastoma
     Dosage: 16 MILLIGRAM, QD
     Route: 042
     Dates: start: 20201205
  5. ATROPINE SULFATE [Suspect]
     Active Substance: ATROPINE SULFATE
     Indication: Glioblastoma
     Dosage: SOL INJECTION 1MG/ML (0.1%):
     Route: 058
     Dates: start: 20201205
  6. LEVETIRACETAM [Concomitant]
     Active Substance: LEVETIRACETAM
     Indication: Seizure
     Dosage: 1000 MILLIGRAM, Q12H
     Route: 048
     Dates: start: 2020

REACTIONS (3)
  - Blindness [Not Recovered/Not Resolved]
  - Drug effective for unapproved indication [Unknown]
  - Off label use [Unknown]

NARRATIVE: CASE EVENT DATE: 20201205
